FAERS Safety Report 6333261-2 (Version None)
Quarter: 2009Q3

REPORT INFORMATION
  Report Type: 
  Country: None (occurrence: None)
  Receive Date: 20090828
  Receipt Date: 20090828
  Transmission Date: 20100115
  Serious: Yes (Other)
  Sender: FDA-Public Use
  Company Number: US-PFIZER INC-2009206398

PATIENT
  Sex: Female
  Weight: 113.38 kg

DRUGS (9)
  1. LYRICA [Suspect]
     Indication: NEUROPATHY PERIPHERAL
     Dosage: UNK
     Route: 048
     Dates: end: 20090301
  2. GLIPIZIDE [Concomitant]
     Dosage: UNK
  3. INSULIN GLARGINE [Concomitant]
     Dosage: UNK
  4. METFORMIN [Concomitant]
     Dosage: UNK
  5. ACETYLSALICYLIC ACID [Concomitant]
     Dosage: UNK
  6. FUROSEMIDE [Concomitant]
     Dosage: UNK
  7. SIMVASTATIN [Concomitant]
     Dosage: UNK
  8. VITAMINS [Concomitant]
     Dosage: UNK
  9. FISH OIL [Concomitant]
     Dosage: UNK

REACTIONS (1)
  - ABORTION SPONTANEOUS [None]
